FAERS Safety Report 26082788 (Version 2)
Quarter: 2025Q4

REPORT INFORMATION
  Report Type: Spontaneous
  Country: EU (occurrence: EU)
  Receive Date: 20251124
  Receipt Date: 20251202
  Transmission Date: 20260117
  Serious: Yes (Life-Threatening)
  Sender: GE HEALTHCARE
  Company Number: EU-GE HEALTHCARE-2025CSU015628

PATIENT
  Age: 61 Year
  Sex: Female

DRUGS (1)
  1. VISIPAQUE [Suspect]
     Active Substance: IODIXANOL
     Indication: Computerised tomogram
     Dosage: UNK UNK, TOTAL
     Route: 042
     Dates: start: 20250923

REACTIONS (2)
  - Somnolence [Recovered/Resolved]
  - Anaphylactic shock [Recovered/Resolved]

NARRATIVE: CASE EVENT DATE: 20250923
